FAERS Safety Report 10168300 (Version 1)
Quarter: 2014Q2

REPORT INFORMATION
  Report Type: Spontaneous
  Country: IT (occurrence: FR)
  Receive Date: 20140512
  Receipt Date: 20140512
  Transmission Date: 20141212
  Serious: Yes (Hospitalization)
  Sender: FDA-Public Use
  Company Number: FR-FRI-1000067189

PATIENT
  Age: 67 Year
  Sex: Female

DRUGS (18)
  1. NEBIVOLOL [Suspect]
     Indication: HYPERTENSION
     Route: 048
     Dates: end: 20140216
  2. COAPROVEL [Suspect]
     Indication: HYPERTENSION
     Route: 048
     Dates: end: 201402
  3. AMLOR [Suspect]
     Indication: HYPERTENSION
     Route: 048
     Dates: end: 2014
  4. AMLOR [Suspect]
     Dosage: 5 MG
     Route: 048
     Dates: start: 2014
  5. PREVISCAN [Suspect]
     Indication: ARRHYTHMIA PROPHYLAXIS
     Route: 048
     Dates: start: 20140116, end: 201402
  6. PREVISCAN [Suspect]
     Dosage: 20 MG
     Route: 048
     Dates: start: 2014
  7. FLECAINE [Suspect]
     Indication: ATRIAL FIBRILLATION
     Route: 048
     Dates: start: 20140116, end: 20140216
  8. FLECAINE [Suspect]
     Route: 048
     Dates: start: 2014
  9. CRESTOR [Concomitant]
  10. FOSAVANCE [Concomitant]
  11. LEVOTHYROX [Concomitant]
  12. LEVEMIR [Concomitant]
  13. NOVOMIX [Concomitant]
  14. PHYSIOTENS [Concomitant]
  15. ZOLTUM [Concomitant]
  16. AZOPT [Concomitant]
  17. ALPHAGAN [Concomitant]
  18. DUOTRAV [Concomitant]

REACTIONS (5)
  - Bradycardia [Recovered/Resolved]
  - Loss of consciousness [Recovered/Resolved]
  - Bundle branch block right [Recovered/Resolved]
  - Renal failure acute [Recovered/Resolved]
  - Ischaemic stroke [Recovered/Resolved]
